FAERS Safety Report 5867069-9 (Version None)
Quarter: 2008Q3

REPORT INFORMATION
  Report Type: 
  Country: None (occurrence: None)
  Receive Date: 20080902
  Receipt Date: 20080825
  Transmission Date: 20090109
  Serious: Yes (Hospitalization)
  Sender: FDA-Public Use
  Company Number: B0534301A

PATIENT
  Age: 37 Year
  Sex: Female

DRUGS (5)
  1. AUGMENTIN [Suspect]
     Indication: TOOTH ABSCESS
     Route: 048
     Dates: start: 20080729, end: 20080808
  2. CLINDAMYCIN HCL [Suspect]
     Indication: TOOTH ABSCESS
     Route: 065
     Dates: start: 20080808, end: 20080810
  3. AUGMENTIN '125' [Suspect]
     Indication: TOOTH ABSCESS
     Route: 042
     Dates: start: 20080813, end: 20080819
  4. CLINDAMYCIN HCL [Suspect]
     Route: 042
     Dates: start: 20080819, end: 20080821
  5. AUGMENTIN [Suspect]
     Route: 048
     Dates: start: 20080821

REACTIONS (8)
  - DISCOMFORT [None]
  - GLOSSITIS [None]
  - HYPERSENSITIVITY [None]
  - INSOMNIA [None]
  - NERVOUS SYSTEM DISORDER [None]
  - NEUROLOGICAL SYMPTOM [None]
  - ORAL DISCOMFORT [None]
  - PYREXIA [None]
